FAERS Safety Report 15298167 (Version 1)
Quarter: 2018Q3

REPORT INFORMATION
  Report Type: Spontaneous
  Country: IT (occurrence: IT)
  Receive Date: 20180820
  Receipt Date: 20180820
  Transmission Date: 20181010
  Serious: Yes (Other)
  Sender: FDA-Public Use
  Company Number: IT-ACELLA PHARMACEUTICALS, LLC-2053972

PATIENT
  Age: 70 Year
  Sex: Female

DRUGS (7)
  1. PHENYTOIN SODIUM. [Suspect]
     Active Substance: PHENYTOIN SODIUM
     Indication: EPILEPSY
  2. CELECOXIB. [Concomitant]
     Active Substance: CELECOXIB
  3. ATENOLOL. [Concomitant]
     Active Substance: ATENOLOL
  4. LISINOPRIL. [Concomitant]
     Active Substance: LISINOPRIL
  5. ACETYLSALICYLIC ACID [Concomitant]
     Active Substance: ASPIRIN
  6. INFLUENZA VIRUS VACCINE [Interacting]
     Active Substance: INFLUENZA VIRUS VACCINE
  7. ESTERIFIED ESTROGENS [Concomitant]
     Active Substance: ESTROGENS, ESTERIFIED

REACTIONS (16)
  - Cough [Recovered/Resolved]
  - Nausea [Recovered/Resolved]
  - Headache [Recovered/Resolved]
  - Stupor [Recovered/Resolved]
  - Diplopia [Recovered/Resolved]
  - Disorientation [Recovered/Resolved]
  - Torticollis [Recovered/Resolved]
  - Respiratory distress [Recovered/Resolved]
  - Mental impairment [Recovered/Resolved]
  - Movement disorder [Recovered/Resolved]
  - Coma [Recovered/Resolved]
  - Eye disorder [Recovered/Resolved]
  - Nervous system disorder [Recovered/Resolved]
  - Pyrexia [Recovered/Resolved]
  - Delirium [Recovered/Resolved]
  - Vomiting [Recovered/Resolved]
